FAERS Safety Report 19116988 (Version 1)
Quarter: 2021Q2

REPORT INFORMATION
  Report Type: Spontaneous
  Country: US (occurrence: US)
  Receive Date: 20210410
  Receipt Date: 20210410
  Transmission Date: 20210717
  Serious: Yes (Other)
  Sender: FDA-Public Use
  Company Number: US-ROCHE-2808582

PATIENT
  Sex: Male

DRUGS (1)
  1. GAVRETO [Suspect]
     Active Substance: PRALSETINIB
     Indication: LUNG NEOPLASM MALIGNANT
     Route: 048
     Dates: start: 20210129, end: 20210301

REACTIONS (4)
  - Nausea [Unknown]
  - Liver function test increased [Unknown]
  - Peripheral swelling [Unknown]
  - Pulmonary oedema [Unknown]
